FAERS Safety Report 7049958-5 (Version None)
Quarter: 2010Q4

REPORT INFORMATION
  Report Type: 
  Country: None (occurrence: None)
  Receive Date: 20101018
  Receipt Date: 20101012
  Transmission Date: 20110411
  Serious: Yes (Death, Hospitalization)
  Sender: FDA-Public Use
  Company Number: PHHO2010US15647

PATIENT
  Sex: Female
  Weight: 82.993 kg

DRUGS (8)
  1. AFINITOR [Suspect]
     Indication: METASTATIC MALIGNANT MELANOMA
     Dosage: 5 MG, DAILY
     Route: 048
     Dates: start: 20100630, end: 20100922
  2. PACLITAXEL COMP-PAC+ [Suspect]
     Indication: METASTATIC MALIGNANT MELANOMA
     Dosage: 175 MG/M2
     Route: 042
     Dates: start: 20100630, end: 20100721
  3. PACLITAXEL COMP-PAC+ [Suspect]
     Dosage: 150 MG/M2
     Route: 042
     Dates: start: 20100721, end: 20100922
  4. CARBOPLATIN [Suspect]
     Indication: METASTATIC MALIGNANT MELANOMA
     Dosage: 6 AUC
     Route: 042
     Dates: start: 20100630, end: 20100721
  5. CARBOPLATIN [Suspect]
     Dosage: 5 AUC
     Route: 042
     Dates: start: 20100721, end: 20100922
  6. CITALOPRAM HYDROBROMIDE [Concomitant]
  7. LEVOTHYROXINE SODIUM [Concomitant]
  8. SIMVASTATIN [Concomitant]

REACTIONS (6)
  - DEHYDRATION [None]
  - GASTROINTESTINAL HAEMORRHAGE [None]
  - MALIGNANT NEOPLASM PROGRESSION [None]
  - PERFORMANCE STATUS DECREASED [None]
  - PULMONARY EMBOLISM [None]
  - VENA CAVA THROMBOSIS [None]
